FAERS Safety Report 25371026 (Version 1)
Quarter: 2025Q2

REPORT INFORMATION
  Report Type: Report from Study
  Country: CA (occurrence: CA)
  Receive Date: 20250529
  Receipt Date: 20250529
  Transmission Date: 20250717
  Serious: Yes (Hospitalization, Other)
  Sender: Alvotech
  Company Number: CA-JAMP PHARMA CORPORATION-2024-JAM-CA-00793

PATIENT
  Age: 23 Year
  Sex: Female

DRUGS (2)
  1. SIMLANDI [Suspect]
     Active Substance: ADALIMUMAB-RYVK
     Indication: Crohn^s disease
     Dosage: 40 MILLIGRAM, EVERY 2 WEEKS
     Route: 058
     Dates: start: 202504
  2. SIMLANDI [Suspect]
     Active Substance: ADALIMUMAB-RYVK
     Indication: Crohn^s disease
     Dosage: 40 MILLIGRAM, EVERY 2 WEEKS
     Route: 058
     Dates: start: 20230429, end: 202503

REACTIONS (20)
  - Rectal abscess [Unknown]
  - Proctalgia [Unknown]
  - Gestational diabetes [Unknown]
  - Anal haemorrhage [Unknown]
  - Anal incontinence [Unknown]
  - Defaecation urgency [Unknown]
  - General physical health deterioration [Unknown]
  - Abscess [Not Recovered/Not Resolved]
  - Diarrhoea [Unknown]
  - Frequent bowel movements [Unknown]
  - Hot flush [Unknown]
  - Gastrointestinal disorder [Unknown]
  - Abdominal pain [Unknown]
  - Back pain [Unknown]
  - Pain [Not Recovered/Not Resolved]
  - Vomiting [Unknown]
  - Anaemia [Not Recovered/Not Resolved]
  - Therapeutic product effect decreased [Unknown]
  - Exposure during pregnancy [Unknown]
  - Intentional dose omission [Unknown]

NARRATIVE: CASE EVENT DATE: 20250301
